FAERS Safety Report 5333571-1 (Version None)
Quarter: 2007Q2

REPORT INFORMATION
  Report Type: 
  Country: None (occurrence: None)
  Receive Date: 20070308
  Receipt Date: 20061113
  Transmission Date: 20071010
  Serious: No
  Sender: FDA-Public Use
  Company Number: 2006-BP-13260BP

PATIENT
  Sex: Male

DRUGS (8)
  1. SPIRIVA [Suspect]
     Indication: CHRONIC OBSTRUCTIVE PULMONARY DISEASE
     Dosage: 18 MCG (18 MCG, 1 IN 1 D), IH
     Route: 055
     Dates: start: 20060901
  2. NEURONTIN [Suspect]
     Indication: NEURALGIA
     Dosage: 200 MG (100 MG, 100MG BID)
     Dates: start: 20061001
  3. ATENOLOL [Concomitant]
  4. LISINOPRIL [Concomitant]
  5. FLOMAX [Concomitant]
  6. RESPIROL (ALL OTHER THERAPEUTIC PRODUCTS) [Concomitant]
  7. ASA (ACETYLSALICYLICA ACID) [Concomitant]
  8. BUSPAR [Concomitant]

REACTIONS (1)
  - VISUAL DISTURBANCE [None]
